FAERS Safety Report 16548949 (Version 1)
Quarter: 2019Q3

REPORT INFORMATION
  Report Type: Spontaneous
  Country: RU (occurrence: RU)
  Receive Date: 20190709
  Receipt Date: 20190709
  Transmission Date: 20191004
  Serious: Yes (Other)
  Sender: FDA-Public Use
  Company Number: PHHY2019RU156380

PATIENT
  Age: 18 Year
  Sex: Female
  Weight: 55 kg

DRUGS (2)
  1. NEOTIGASON [Concomitant]
     Active Substance: ACITRETIN
     Indication: PUSTULAR PSORIASIS
     Route: 048
  2. COSENTYX [Suspect]
     Active Substance: SECUKINUMAB
     Indication: PUSTULAR PSORIASIS
     Dosage: UNK
     Route: 030
     Dates: start: 20190530, end: 20190530

REACTIONS (5)
  - Asthenia [Recovering/Resolving]
  - Skin burning sensation [Recovering/Resolving]
  - Hypotension [Recovering/Resolving]
  - Chills [Recovering/Resolving]
  - Body temperature increased [Recovering/Resolving]

NARRATIVE: CASE EVENT DATE: 20190530
